FAERS Safety Report 9233645 (Version 2)
Quarter: 2013Q2

REPORT INFORMATION
  Report Type: Spontaneous
  Country: US (occurrence: US)
  Receive Date: 20130416
  Receipt Date: 20130416
  Transmission Date: 20140414
  Serious: No
  Sender: FDA-Public Use
  Company Number: US-BANPHARM-20130568

PATIENT
  Age: 54 Year
  Sex: Female
  Weight: 72.57 kg

DRUGS (3)
  1. ALEVE LIQUID GELS 220MG [Suspect]
     Indication: PAIN
     Dosage: 1 DF, QD,
     Route: 048
     Dates: start: 20120119, end: 20120120
  2. BAYER ADVANCED ASPIRIN 500MG [Suspect]
     Indication: HEADACHE
     Dosage: 2 DF, BID,
     Route: 048
     Dates: start: 20120117, end: 20120118
  3. ALEVE TABLETS [Suspect]
     Indication: HEADACHE
     Dosage: 1 DF, QD,
     Route: 048
     Dates: start: 20120119, end: 20120120

REACTIONS (1)
  - Drug ineffective [Unknown]
